FAERS Safety Report 7737794-3 (Version None)
Quarter: 2011Q3

REPORT INFORMATION
  Report Type: 
  Country: None (occurrence: None)
  Receive Date: 20110908
  Receipt Date: 20110825
  Transmission Date: 20111222
  Serious: Yes (Other)
  Sender: FDA-Public Use
  Company Number: PHHY2011US57402

PATIENT
  Sex: Female
  Weight: 45.351 kg

DRUGS (14)
  1. OXYCODONE HCL [Concomitant]
  2. TANDEM [Concomitant]
     Dosage: UNK UKN, PRN
     Route: 048
  3. MEGESTROL ACETATE [Concomitant]
     Dosage: 20 ML, OF 40 MG / ML
     Route: 048
  4. AFINITOR [Suspect]
     Indication: CARCINOID TUMOUR
     Dosage: 5 MG, QD
     Route: 048
  5. PROMETHAZINE HYDROCHLORIDE [Concomitant]
     Dosage: 25 MG, Q6H
     Route: 048
  6. CYPROHEPTADINE HYDROCHLORIDE [Concomitant]
     Dosage: 2 MG, QID
     Route: 048
  7. MEGACE [Concomitant]
     Dosage: 1 DF, QD
     Route: 048
  8. LORTAB [Concomitant]
     Dosage: 7.5 MG, UNK
  9. POTASSIUM CHLORIDE [Concomitant]
     Dosage: 1.5 MG, 20 MEQ
     Route: 048
  10. GABAPENTIN [Concomitant]
     Dosage: 300 MG, TID
  11. SANDOSTATIN [Suspect]
     Indication: METASTATIC CARCINOID TUMOUR
     Dosage: 150 MG, TID
     Route: 058
  12. MS CONTIN [Concomitant]
     Dosage: 30 MG, BID FOR 30 DAYS
  13. TYLOX [Concomitant]
     Dosage: 5 MG OXYCODONE HYDROCHLORIDE AND 500 MG PARACETAMOLUNK
     Route: 048
  14. OCTREOTIDE ACETATE [Concomitant]
     Dosage: 30 MG, DAILY FOR 1 DAY
     Route: 030

REACTIONS (25)
  - PROTEIN TOTAL DECREASED [None]
  - BLOOD LACTATE DEHYDROGENASE INCREASED [None]
  - OEDEMA PERIPHERAL [None]
  - IRON DEFICIENCY ANAEMIA [None]
  - SENSORY DISTURBANCE [None]
  - VENOUS INSUFFICIENCY [None]
  - DIARRHOEA [None]
  - NAUSEA [None]
  - INTESTINAL POLYP [None]
  - BLOOD CREATININE DECREASED [None]
  - FATIGUE [None]
  - HEADACHE [None]
  - HAEMATOCRIT DECREASED [None]
  - GASTROINTESTINAL HAEMORRHAGE [None]
  - WEIGHT DECREASED [None]
  - NEOPLASM MALIGNANT [None]
  - EPISTAXIS [None]
  - HAEMOGLOBIN DECREASED [None]
  - BLOOD POTASSIUM DECREASED [None]
  - IRON DEFICIENCY [None]
  - VISION BLURRED [None]
  - BLOOD ALBUMIN DECREASED [None]
  - MALAISE [None]
  - BLOOD CALCIUM DECREASED [None]
  - BLOOD GLUCOSE INCREASED [None]
